FAERS Safety Report 6197992-X (Version None)
Quarter: 2009Q2

REPORT INFORMATION
  Report Type: 
  Country: None (occurrence: None)
  Receive Date: 20090521
  Receipt Date: 20090515
  Transmission Date: 20091009
  Serious: Yes (Hospitalization, Other)
  Sender: FDA-Public Use
  Company Number: CA-ELI_LILLY_AND_COMPANY-CA200904003017

PATIENT
  Age: 53 Year
  Sex: Male

DRUGS (13)
  1. FORTEO [Suspect]
     Indication: OSTEOPOROSIS
     Dosage: 20 UG, DAILY (1/D)
     Route: 058
     Dates: start: 20090305
  2. LASIX [Concomitant]
  3. VENTOLIN [Concomitant]
  4. ATROVENT [Concomitant]
  5. SYMBICORT [Concomitant]
  6. GLUCOPHAGE [Concomitant]
  7. ATIVAN [Concomitant]
  8. PREDNISONE [Concomitant]
  9. PLAQUENIL [Concomitant]
  10. OMEPRAZOLE [Concomitant]
  11. HYDROMORPHONE HCL [Concomitant]
  12. CELEXA [Concomitant]
  13. LIPIDIL [Concomitant]

REACTIONS (2)
  - PNEUMONIA [None]
  - PULMONARY OEDEMA [None]
